FAERS Safety Report 21097982 (Version 1)
Quarter: 2022Q3

REPORT INFORMATION
  Report Type: Spontaneous
  Country: GR (occurrence: GR)
  Receive Date: 20220719
  Receipt Date: 20220719
  Transmission Date: 20221026
  Serious: Yes (Hospitalization, Other)
  Sender: FDA-Public Use
  Company Number: GR-SUN PHARMACEUTICAL INDUSTRIES LTD-2022R1-344594

PATIENT
  Age: 15 Year
  Sex: Male

DRUGS (1)
  1. ANASTROZOLE [Suspect]
     Active Substance: ANASTROZOLE
     Indication: Short stature
     Dosage: UNK
     Route: 065

REACTIONS (3)
  - Deep vein thrombosis [Recovered/Resolved]
  - Pulmonary embolism [Unknown]
  - COVID-19 [Recovered/Resolved]
